FAERS Safety Report 5725705-1 (Version None)
Quarter: 2008Q2

REPORT INFORMATION
  Report Type: 
  Country: None (occurrence: None)
  Receive Date: 20080429
  Receipt Date: 20080421
  Transmission Date: 20081010
  Serious: Yes (Hospitalization)
  Sender: FDA-Public Use
  Company Number: DSU-2008-00580

PATIENT
  Sex: Female

DRUGS (4)
  1. WELCHOL [Suspect]
     Indication: DIARRHOEA
     Dosage: PER ORAL
     Route: 048
  2. ACE INHIBITOR (ACE INHIBITOR NOS) [Suspect]
     Indication: DRUG USE FOR UNKNOWN INDICATION
  3. BETA BLOCKER (BETA BLOCKER AGENTS) [Suspect]
     Indication: DRUG USE FOR UNKNOWN INDICATION
  4. DIGOXIN [Concomitant]

REACTIONS (3)
  - BLOOD PRESSURE INCREASED [None]
  - CARDIAC FAILURE [None]
  - DRUG INTERACTION [None]
